FAERS Safety Report 21767657 (Version 1)
Quarter: 2022Q4

REPORT INFORMATION
  Report Type: Spontaneous
  Country: US (occurrence: None)
  Receive Date: 20221221
  Receipt Date: 20221221
  Transmission Date: 20230113
  Serious: No
  Sender: FDA-Public Use
  Company Number: None

PATIENT
  Sex: Male

DRUGS (1)
  1. MAVYRET [Suspect]
     Active Substance: GLECAPREVIR\PIBRENTASVIR
     Dosage: OTHER QUANTITY : 100-40MG;?FREQUENCY : DAILY;?
     Route: 048
     Dates: start: 20221107

REACTIONS (4)
  - Swelling face [None]
  - Lip swelling [None]
  - Peripheral swelling [None]
  - Skin disorder [None]
